FAERS Safety Report 5599313-X (Version None)
Quarter: 2008Q1

REPORT INFORMATION
  Report Type: 
  Country: None (occurrence: None)
  Receive Date: 20080122
  Receipt Date: 20080110
  Transmission Date: 20080703
  Serious: Yes (Other)
  Sender: FDA-Public Use
  Company Number: SE-PFIZER INC-2008004129

PATIENT
  Age: 70 Year
  Sex: Female

DRUGS (1)
  1. XANOR DEPOT [Suspect]

REACTIONS (3)
  - HELICOBACTER GASTRITIS [None]
  - NAUSEA [None]
  - URINARY TRACT INFECTION [None]
